FAERS Safety Report 23652601 (Version 2)
Quarter: 2024Q1

REPORT INFORMATION
  Report Type: Report from Study
  Country: US (occurrence: US)
  Receive Date: 20240320
  Receipt Date: 20240325
  Transmission Date: 20240410
  Serious: No
  Sender: FDA-Public Use
  Company Number: US-SA-SAC20240315001085

PATIENT
  Age: 68 Year
  Sex: Female

DRUGS (4)
  1. DUPIXENT [Suspect]
     Active Substance: DUPILUMAB
     Indication: Eczema
     Dosage: 600 MG, 1X
     Route: 058
     Dates: start: 20240305, end: 20240305
  2. DUPIXENT [Suspect]
     Active Substance: DUPILUMAB
     Indication: Dermatitis atopic
  3. HALOBETASOL [Suspect]
     Active Substance: HALOBETASOL
     Indication: Pruritus
     Dosage: UNK UNK, BID
  4. HALOBETASOL [Suspect]
     Active Substance: HALOBETASOL
     Indication: Skin fissures
     Dosage: UNK UNK, QW

REACTIONS (9)
  - Injection site bruising [Not Recovered/Not Resolved]
  - Injection site pain [Not Recovered/Not Resolved]
  - Injection site swelling [Unknown]
  - Injection site pruritus [Unknown]
  - Scab [Unknown]
  - Pruritus [Unknown]
  - Skin exfoliation [Unknown]
  - Accidental exposure to product [Unknown]
  - Exposure via skin contact [Unknown]

NARRATIVE: CASE EVENT DATE: 20240305
